FAERS Safety Report 4711540-X (Version None)
Quarter: 2005Q3

REPORT INFORMATION
  Report Type: 
  Country: None (occurrence: None)
  Receive Date: 20050708
  Receipt Date: 20050708
  Transmission Date: 20060218
  Serious: Yes (Hospitalization)
  Sender: FDA-Public Use
  Company Number: None

PATIENT
  Age: 71 Year
  Sex: Male
  Weight: 97.5 kg

DRUGS (1)
  1. MERCAPTOPURINE [Suspect]
     Indication: AUTOIMMUNE HEPATITIS
     Dosage: 125 MG, 125 MG , QD, ORAL
     Route: 048
     Dates: start: 20050418, end: 20050826

REACTIONS (4)
  - BLOOD BILIRUBIN INCREASED [None]
  - HEPATIC ENZYME INCREASED [None]
  - JAUNDICE [None]
  - LEUKOPENIA [None]
